FAERS Safety Report 7387574-6 (Version None)
Quarter: 2011Q1

REPORT INFORMATION
  Report Type: 
  Country: None (occurrence: None)
  Receive Date: 20110331
  Receipt Date: 20110315
  Transmission Date: 20110831
  Serious: No
  Sender: FDA-Public Use
  Company Number: US-BAYER-2011-026333

PATIENT
  Sex: Male
  Weight: 73 kg

DRUGS (5)
  1. GLUCOSAMINE [GLUCOSAMINE] [Concomitant]
  2. NATUREMADE VITAMIN C [Concomitant]
  3. ALEVE (CAPLET) [Suspect]
     Indication: ARTHRITIS
     Dosage: 1 DF, BID
     Route: 048
  4. CARDURA [Concomitant]
  5. FLINTSTONES GUMMIES [Concomitant]

REACTIONS (1)
  - ABDOMINAL PAIN UPPER [None]
